FAERS Safety Report 25150105 (Version 1)
Quarter: 2025Q2

REPORT INFORMATION
  Report Type: Spontaneous
  Country: IT (occurrence: IT)
  Receive Date: 20250402
  Receipt Date: 20250402
  Transmission Date: 20250717
  Serious: Yes (Other)
  Sender: GLAND PHARMA
  Company Number: IT-GLANDPHARMA-IT-2025GLNLIT00864

PATIENT
  Age: 55 Year
  Sex: Female

DRUGS (2)
  1. ARSENIC TRIOXIDE [Suspect]
     Active Substance: ARSENIC TRIOXIDE
     Indication: Acute promyelocytic leukaemia
     Route: 065
     Dates: start: 2019
  2. TRETINOIN [Suspect]
     Active Substance: TRETINOIN
     Indication: Acute promyelocytic leukaemia
     Route: 065
     Dates: start: 2019

REACTIONS (1)
  - Neurotoxicity [Recovering/Resolving]
